FAERS Safety Report 9184985 (Version 4)
Quarter: 2013Q2

REPORT INFORMATION
  Report Type: Spontaneous
  Country: US (occurrence: US)
  Receive Date: 20130325
  Receipt Date: 20130516
  Transmission Date: 20140414
  Serious: Yes (Death, Hospitalization)
  Sender: FDA-Public Use
  Company Number: US-JNJFOC-20130312102

PATIENT
  Age: 81 Year
  Sex: Male
  Weight: 135 kg

DRUGS (12)
  1. XARELTO [Suspect]
     Indication: CEREBROVASCULAR ACCIDENT PROPHYLAXIS
     Route: 048
  2. XARELTO [Suspect]
     Indication: CEREBROVASCULAR ACCIDENT PROPHYLAXIS
     Dosage: 3 MONTHS
     Route: 048
     Dates: start: 20120904, end: 20121001
  3. XARELTO [Suspect]
     Indication: ATRIAL FIBRILLATION
     Route: 048
  4. XARELTO [Suspect]
     Indication: ATRIAL FIBRILLATION
     Dosage: 3 MONTHS
     Route: 048
     Dates: start: 20120904, end: 20121001
  5. NORVASC [Concomitant]
     Route: 048
  6. LASIX [Concomitant]
     Route: 048
  7. POTASSIUM CHLORIDE [Concomitant]
     Route: 048
  8. ATENOLOL [Concomitant]
     Route: 048
  9. QUINAPRIL [Concomitant]
     Route: 065
  10. GLIMEPIRIDE [Concomitant]
     Route: 048
  11. PRAVASTATIN [Concomitant]
     Route: 048
  12. EZETIMIBE [Concomitant]
     Route: 048

REACTIONS (1)
  - Haemorrhagic stroke [Fatal]
